FAERS Safety Report 19070039 (Version 1)
Quarter: 2021Q1

REPORT INFORMATION
  Report Type: Report from Study
  Country: US (occurrence: US)
  Receive Date: 20210329
  Receipt Date: 20210329
  Transmission Date: 20210420
  Serious: Yes (Other)
  Sender: FDA-Public Use
  Company Number: US-JNJFOC-20210233560

PATIENT
  Sex: Female
  Weight: 81.8 kg

DRUGS (4)
  1. MACITENTAN [Suspect]
     Active Substance: MACITENTAN
     Indication: PULMONARY ARTERIAL HYPERTENSION
     Route: 048
  2. SILDENAFIL CITRATE. [Concomitant]
     Active Substance: SILDENAFIL CITRATE
  3. DILTIAZEM. [Concomitant]
     Active Substance: DILTIAZEM
  4. METOPROLOL. [Suspect]
     Active Substance: METOPROLOL

REACTIONS (7)
  - Aortic aneurysm [Unknown]
  - Dizziness [Unknown]
  - Syncope [Unknown]
  - Palpitations [Unknown]
  - Headache [Recovered/Resolved]
  - Nasal congestion [Unknown]
  - Presyncope [Unknown]
